FAERS Safety Report 5880909-2 (Version None)
Quarter: 2008Q3

REPORT INFORMATION
  Report Type: 
  Country: None (occurrence: None)
  Receive Date: 20080912
  Receipt Date: 20080604
  Transmission Date: 20090109
  Serious: No
  Sender: FDA-Public Use
  Company Number: US-ABBOTT-08P-163-0457050-00

PATIENT
  Sex: Female
  Weight: 135.75 kg

DRUGS (9)
  1. HUMIRA [Suspect]
     Indication: PSORIATIC ARTHROPATHY
     Route: 050
     Dates: start: 20071201
  2. LANTIS INSULIN [Concomitant]
     Indication: DIABETES MELLITUS
     Dosage: SLIDING SCALE EVERY AM
     Route: 050
     Dates: start: 20080516
  3. NOVALOG INSULIN [Concomitant]
     Indication: DIABETES MELLITUS
     Dosage: SLIDING SCALE TID
     Route: 050
     Dates: start: 20080606
  4. METFORMIN HCL [Concomitant]
     Indication: DIABETES MELLITUS
     Route: 048
     Dates: start: 20080606
  5. BENICAR HCT [Concomitant]
     Indication: HYPERTENSION
     Dosage: 20/12.5 MG
     Route: 048
  6. ETODOLAC [Concomitant]
     Indication: ANTIINFLAMMATORY THERAPY
     Route: 048
     Dates: start: 20071201
  7. SULFASALAZINE [Concomitant]
     Indication: PSORIATIC ARTHROPATHY
     Dosage: 3 TABS IN AM, 2 TABS IN PM
     Dates: start: 20071201
  8. INEGY [Concomitant]
     Indication: BLOOD CHOLESTEROL
     Dosage: 10/40 MG
     Route: 048
     Dates: start: 20080606
  9. TACLONEX OINTMENT [Concomitant]
     Indication: PSORIASIS
     Route: 061
     Dates: start: 20070622

REACTIONS (1)
  - PROCEDURAL COMPLICATION [None]
